FAERS Safety Report 6078481-X (Version None)
Quarter: 2009Q1

REPORT INFORMATION
  Report Type: 
  Country: None (occurrence: None)
  Receive Date: 20090211
  Receipt Date: 20090211
  Transmission Date: 20090719
  Serious: Yes (Other)
  Sender: FDA-Public Use
  Company Number: None

PATIENT
  Age: 30 Year
  Sex: Male

DRUGS (3)
  1. AZITHROMYCIN [Suspect]
     Indication: CERVIX DISORDER
     Dosage: 1 GM STAT PO
     Route: 048
  2. AZITHROMYCIN [Suspect]
     Indication: CHLAMYDIA IDENTIFICATION TEST POSITIVE
     Dosage: 1 GM STAT PO
     Route: 048
  3. AZITHROMYCIN [Suspect]
     Indication: URETHRAL DISORDER
     Dosage: 1 GM STAT PO
     Route: 048

REACTIONS (3)
  - CHLAMYDIAL INFECTION [None]
  - DRUG INEFFECTIVE [None]
  - PRODUCT QUALITY ISSUE [None]
